FAERS Safety Report 7267613-3 (Version None)
Quarter: 2011Q1

REPORT INFORMATION
  Report Type: 
  Country: None (occurrence: None)
  Receive Date: 20110121
  Receipt Date: 20110113
  Transmission Date: 20110831
  Serious: Yes (Other)
  Sender: FDA-Public Use
  Company Number: IPC201101-000021

PATIENT
  Age: 82 Year
  Sex: Male

DRUGS (8)
  1. PANTOPRAZOLE [Suspect]
     Indication: GASTROOESOPHAGEAL REFLUX DISEASE
     Dosage: 40 MG, 2 IN ONE DAY, ORAL
     Route: 048
  2. GLUCOSE MONOHYDRATE, PLANTAGO OVATA (ISPAGHULA) HUSK (CAPSULES) [Suspect]
     Indication: CONSTIPATION
     Dosage: 2 DOSAGE FORMS, ORAL
     Route: 048
  3. METOPROLOL TARTRATE [Suspect]
     Indication: HYPERTENSION
     Dosage: 50 MG ONCE DAILY, ORAL
     Route: 048
  4. ACETYLSALICYLIC ACID SRT [Suspect]
     Indication: CARDIAC DISORDER
     Dosage: 325 MG IN 1 DAY, ORAL
     Route: 048
  5. ROSUVASTATIN CALCIUM [Suspect]
     Indication: BLOOD CHOLESTEROL INCREASED
     Dosage: 10 MG, 1 IN 1 DAY, ORAL
     Route: 048
  6. CLOPIDOGREL [Suspect]
     Indication: CARDIAC DISORDER
     Dosage: 75 MG, 1 IN 1 DAY, ORAL
     Route: 048
  7. SILVER SULFADIAZINE [Suspect]
     Indication: THERMAL BURN
     Dosage: ONCE DAILY, TOPICAL
     Route: 061
     Dates: start: 20091021, end: 20091201
  8. LISINOPRIL [Suspect]
     Indication: HYPERTENSION
     Dosage: 10 MG, 1 IN 1DAY, ORAL
     Route: 048

REACTIONS (5)
  - IMPAIRED HEALING [None]
  - THERMAL BURN [None]
  - CONDITION AGGRAVATED [None]
  - DRUG INEFFECTIVE [None]
  - DRUG HYPERSENSITIVITY [None]
